FAERS Safety Report 4873563-X (Version None)
Quarter: 2005Q4

REPORT INFORMATION
  Report Type: 
  Country: None (occurrence: None)
  Receive Date: 20051201
  Receipt Date: 20050822
  Transmission Date: 20060501
  Serious: No
  Sender: FDA-Public Use
  Company Number: 2005PV001459

PATIENT
  Age: 64 Year
  Sex: Female
  Weight: 104.3273 kg

DRUGS (14)
  1. BYETTA [Suspect]
     Indication: DIABETES MELLITUS NON-INSULIN-DEPENDENT
     Dosage: 5 MCG;BID;SC
     Route: 058
     Dates: start: 20050725
  2. HUMULIN 70/30 [Concomitant]
  3. ZETIA [Concomitant]
  4. TRICOR [Concomitant]
  5. COZAAR [Concomitant]
  6. CRESTOR [Concomitant]
  7. CLONIDINE [Concomitant]
  8. HYDROCHLOROTHIAZIDE [Concomitant]
  9. INDOMETHACIN [Concomitant]
  10. CALCIUM GLUCONATE [Concomitant]
  11. OMEGA 3 FATTY ACIDS [Concomitant]
  12. EVISTA [Concomitant]
  13. ASPIRIN [Concomitant]
  14. SYNTHROID [Concomitant]

REACTIONS (5)
  - BLOOD GLUCOSE INCREASED [None]
  - FEELING JITTERY [None]
  - HEADACHE [None]
  - NAUSEA [None]
  - VOMITING [None]
